FAERS Safety Report 5698737-X (Version None)
Quarter: 2008Q2

REPORT INFORMATION
  Report Type: 
  Country: None (occurrence: None)
  Receive Date: 20080408
  Receipt Date: 20070507
  Transmission Date: 20081010
  Serious: No
  Sender: FDA-Public Use
  Company Number: US-BAYER-US-2007-016213

PATIENT
  Age: 54 Year
  Sex: Female

DRUGS (4)
  1. CLIMARA [Suspect]
     Indication: HORMONE REPLACEMENT THERAPY
     Route: 062
  2. CELEBREX [Concomitant]
     Route: 048
  3. BENICAR [Concomitant]
     Route: 048
  4. SYNTHROID [Concomitant]
     Route: 048

REACTIONS (1)
  - APPLICATION SITE RASH [None]
